FAERS Safety Report 10841551 (Version 1)
Quarter: 2015Q1

REPORT INFORMATION
  Report Type: Spontaneous
  Country: US (occurrence: US)
  Receive Date: 20150220
  Receipt Date: 20150220
  Transmission Date: 20150721
  Serious: Yes (Hospitalization)
  Sender: FDA-Public Use
  Company Number: US-BIOGENIDEC-2015BI016802

PATIENT
  Sex: Female

DRUGS (1)
  1. TYSABRI [Suspect]
     Active Substance: NATALIZUMAB
     Indication: MULTIPLE SCLEROSIS
     Route: 042
     Dates: start: 20140703, end: 20140731

REACTIONS (10)
  - Joint instability [Unknown]
  - Gastric disorder [Not Recovered/Not Resolved]
  - Neuralgia [Not Recovered/Not Resolved]
  - Vaginal infection [Unknown]
  - Muscular weakness [Unknown]
  - Dizziness [Unknown]
  - Throat lesion [Not Recovered/Not Resolved]
  - Arthralgia [Unknown]
  - Joint crepitation [Not Recovered/Not Resolved]
  - Joint swelling [Not Recovered/Not Resolved]
